FAERS Safety Report 9552979 (Version 1)
Quarter: 2013Q3

REPORT INFORMATION
  Report Type: Spontaneous
  Country: US (occurrence: None)
  Receive Date: 20130924
  Receipt Date: 20130924
  Transmission Date: 20140515
  Serious: Yes (Hospitalization, Other)
  Sender: FDA-Public Use
  Company Number: None

PATIENT
  Age: 49 Year
  Sex: Female
  Weight: 81 kg

DRUGS (2)
  1. Z-PAK [Suspect]
     Indication: SINUSITIS
     Dosage: 5 DAYS, IN LATE AUG 2013
  2. COLACE [Concomitant]

REACTIONS (7)
  - Jaundice [None]
  - Hepatic necrosis [None]
  - Abdominal pain [None]
  - Drug-induced liver injury [None]
  - Fatigue [None]
  - Aspartate aminotransferase increased [None]
  - Alanine aminotransferase increased [None]
